FAERS Safety Report 24987157 (Version 1)
Quarter: 2025Q1

REPORT INFORMATION
  Report Type: Report from Study
  Country: US (occurrence: US)
  Receive Date: 20250219
  Receipt Date: 20250219
  Transmission Date: 20250408
  Serious: Yes (Other)
  Sender: ABBVIE
  Company Number: US-ABBVIE-6070010

PATIENT
  Age: 72 Year
  Sex: Female

DRUGS (1)
  1. VIIBRYD [Suspect]
     Active Substance: VILAZODONE HYDROCHLORIDE
     Indication: Product used for unknown indication
     Dosage: FORM STRENGTH: 40 MILLIGRAM
     Route: 048

REACTIONS (3)
  - Spinal column injury [Unknown]
  - Limb injury [Unknown]
  - Fall [Unknown]

NARRATIVE: CASE EVENT DATE: 20230101
